APPROVED DRUG PRODUCT: POTASSIUM CHLORIDE
Active Ingredient: POTASSIUM CHLORIDE
Strength: 20MEQ
Dosage Form/Route: FOR SOLUTION;ORAL
Application: A211667 | Product #001 | TE Code: AA
Applicant: STRIDES PHARMA GLOBAL PTE LTD
Approved: Mar 11, 2021 | RLD: No | RS: No | Type: RX